FAERS Safety Report 4571151-6 (Version None)
Quarter: 2005Q1

REPORT INFORMATION
  Report Type: 
  Country: None (occurrence: None)
  Receive Date: 20050202
  Receipt Date: 20050120
  Transmission Date: 20050727
  Serious: Yes (Hospitalization)
  Sender: FDA-Public Use
  Company Number: 2005017675

PATIENT
  Age: 60 Year
  Sex: Female

DRUGS (3)
  1. PHENYTOIN [Suspect]
     Indication: EPILEPSY
     Dosage: 100 MG (TID)
  2. DILTIAZEM [Suspect]
     Indication: BLOOD PRESSURE INCREASED
     Dosage: 60 MG (QD), ORAL
     Route: 048
     Dates: start: 20041217, end: 20041221
  3. WARFARIN SODIUM [Suspect]

REACTIONS (5)
  - ANTICONVULSANT DRUG LEVEL INCREASED [None]
  - CONTUSION [None]
  - DIZZINESS [None]
  - DRUG INTERACTION [None]
  - FALL [None]
